FAERS Safety Report 5247801-8 (Version None)
Quarter: 2007Q1

REPORT INFORMATION
  Report Type: 
  Country: None (occurrence: None)
  Receive Date: 20070227
  Receipt Date: 20070227
  Transmission Date: 20070707
  Serious: Yes (Hospitalization)
  Sender: FDA-Public Use
  Company Number: None

PATIENT
  Age: 75 Year
  Sex: Male
  Weight: 97.7955 kg

DRUGS (1)
  1. OCTREOTIDE ACETATE [Suspect]
     Indication: PANCREATIC NEOPLASM
     Dosage: 150 MCG/1.5 ML ONCE DAILY SQ
     Route: 058

REACTIONS (3)
  - DIARRHOEA [None]
  - DIZZINESS [None]
  - NAUSEA [None]
